FAERS Safety Report 13594046 (Version 1)
Quarter: 2017Q2

REPORT INFORMATION
  Report Type: Spontaneous
  Country: JP (occurrence: JP)
  Receive Date: 20170530
  Receipt Date: 20170530
  Transmission Date: 20170830
  Serious: Yes (Death)
  Sender: FDA-Public Use
  Company Number: JP-SUNOVION-2017SUN002303

PATIENT
  Age: 4 Decade
  Sex: Male
  Weight: 58.5 kg

DRUGS (3)
  1. LUNESTA [Suspect]
     Active Substance: ESZOPICLONE
     Dosage: 2 MG, UNK
     Route: 048
  2. SILECE [Suspect]
     Active Substance: FLUNITRAZEPAM
     Dosage: UNK
     Route: 048
  3. NITRAZEPAM [Suspect]
     Active Substance: NITRAZEPAM
     Dosage: UNK
     Route: 048

REACTIONS (1)
  - Death [Fatal]
